FAERS Safety Report 8762321 (Version 2)
Quarter: 2012Q4

REPORT INFORMATION
  Report Type: 
  Country: JP (occurrence: JP)
  Receive Date: 20120830
  Receipt Date: 20121119
  Transmission Date: 20130627
  Serious: Yes (Hospitalization)
  Sender: FDA-Public Use
  Company Number: JP-ELI_LILLY_AND_COMPANY-JP201208006269

PATIENT
  Age: 75 Year
  Sex: Female

DRUGS (3)
  1. FORTEO [Suspect]
     Indication: OSTEOPOROSIS
     Dosage: 20 ug, qd
     Route: 058
     Dates: start: 20120720
  2. LOXONIN [Concomitant]
     Indication: PAIN
     Dosage: UNK
     Route: 048
  3. SELBEX [Concomitant]
     Indication: GASTRITIS PROPHYLAXIS
     Dosage: UNK
     Route: 048

REACTIONS (2)
  - Lumbar vertebral fracture [Not Recovered/Not Resolved]
  - Blood uric acid increased [Not Recovered/Not Resolved]
